FAERS Safety Report 8398908-8 (Version None)
Quarter: 2012Q2

REPORT INFORMATION
  Report Type: 
  Country: None (occurrence: None)
  Receive Date: 20120531
  Receipt Date: 20110504
  Transmission Date: 20120825
  Serious: No
  Sender: FDA-Public Use
  Company Number: US-NOVEN-11US002438

PATIENT
  Age: 7 Year
  Sex: Female

DRUGS (1)
  1. DAYTRANA [Suspect]
     Indication: ATTENTION DEFICIT/HYPERACTIVITY DISORDER
     Dosage: UNK
     Route: 062

REACTIONS (4)
  - TREMOR [None]
  - VISUAL IMPAIRMENT [None]
  - INCORRECT DOSE ADMINISTERED [None]
  - HYPERHIDROSIS [None]
